FAERS Safety Report 9975892 (Version 1)
Quarter: 2014Q1

REPORT INFORMATION
  Report Type: Spontaneous
  Country: US (occurrence: US)
  Receive Date: 20140306
  Receipt Date: 20140306
  Transmission Date: 20141002
  Serious: No
  Sender: FDA-Public Use
  Company Number: US-PFIZER INC-2014060220

PATIENT
  Age: 56 Year
  Sex: Male
  Weight: 95.24 kg

DRUGS (3)
  1. DIGOXIN [Concomitant]
     Dosage: 0.250 MG, 1X/DAY
  2. ISOSORBIDE [Concomitant]
     Dosage: 30 MG, DAILY
  3. TIKOSYN [Suspect]
     Indication: ATRIAL FIBRILLATION
     Dosage: 0.5 MG, 2X/DAY
     Dates: start: 2012, end: 2013

REACTIONS (2)
  - Drug ineffective [Unknown]
  - Blood test abnormal [Unknown]
